FAERS Safety Report 4490068-9 (Version None)
Quarter: 2004Q4

REPORT INFORMATION
  Report Type: 
  Country: None (occurrence: None)
  Receive Date: 20041027
  Receipt Date: 20041015
  Transmission Date: 20050328
  Serious: Yes (Death, Hospitalization)
  Sender: FDA-Public Use
  Company Number: 2004-BP-07714RO

PATIENT
  Age: 75 Year
  Sex: Male

DRUGS (6)
  1. LEUCOVORIN CALCIUM [Suspect]
     Indication: COLON CANCER
     Dosage: SEE IMAGE
     Route: 048
     Dates: start: 20040621, end: 20040627
  2. LEUCOVORIN CALCIUM [Suspect]
     Indication: COLON CANCER
     Dosage: SEE IMAGE
     Route: 048
     Dates: start: 20040628, end: 20040719
  3. UFT [Suspect]
     Indication: COLON CANCER
     Dosage: SEE IMAGE
     Route: 048
     Dates: start: 20040621, end: 20040627
  4. UFT [Suspect]
     Indication: COLON CANCER
     Dosage: SEE IMAGE
     Route: 048
     Dates: start: 20040628, end: 20040719
  5. FLUOROURACIL [Concomitant]
  6. CALCIUM LEVOFOLINATE (CALCIUM LEVOFOLINATE) [Concomitant]

REACTIONS (10)
  - ASCITES [None]
  - COLON CANCER METASTATIC [None]
  - DECREASED APPETITE [None]
  - INTRA-ABDOMINAL HAEMORRHAGE [None]
  - MALIGNANT NEOPLASM PROGRESSION [None]
  - METASTASES TO LIVER [None]
  - PERITONITIS [None]
  - PLEURAL EFFUSION [None]
  - RETROPERITONEAL CANCER [None]
  - THERAPY NON-RESPONDER [None]
